FAERS Safety Report 4751233-6 (Version None)
Quarter: 2005Q3

REPORT INFORMATION
  Report Type: 
  Country: None (occurrence: None)
  Receive Date: 20050824
  Receipt Date: 20050824
  Transmission Date: 20060218
  Serious: Yes (Life-Threatening, Disabling, Other)
  Sender: FDA-Public Use
  Company Number: None

PATIENT
  Age: 37 Year
  Sex: Male
  Weight: 113.3993 kg

DRUGS (4)
  1. NARDIL [Suspect]
     Indication: DEPRESSION
     Dosage: 30 MG.   3 T.I.D   PO
     Route: 048
     Dates: start: 19930401, end: 20050923
  2. NARDIL [Suspect]
     Indication: SOCIAL PHOBIA
     Dosage: 30 MG.   3 T.I.D   PO
     Route: 048
     Dates: start: 19930401, end: 20050923
  3. VALIUM [Concomitant]
  4. NEURONTIN [Concomitant]

REACTIONS (8)
  - DEPRESSION [None]
  - DISEASE RECURRENCE [None]
  - DRUG INEFFECTIVE [None]
  - GENERALISED ANXIETY DISORDER [None]
  - LOSS OF EMPLOYMENT [None]
  - PHARMACEUTICAL PRODUCT COMPLAINT [None]
  - SOCIAL PHOBIA [None]
  - WEIGHT INCREASED [None]
